FAERS Safety Report 11008917 (Version 2)
Quarter: 2015Q3

REPORT INFORMATION
  Report Type: Spontaneous
  Country: DE (occurrence: DE)
  Receive Date: 20150410
  Receipt Date: 20150731
  Transmission Date: 20151125
  Serious: Yes (Hospitalization, Other)
  Sender: FDA-Public Use
  Company Number: DE-RANBAXY-2015RR-93841

PATIENT
  Age: 60 Year
  Sex: Male
  Weight: 116 kg

DRUGS (4)
  1. LOCOL [Concomitant]
     Active Substance: FLUVASTATIN SODIUM
     Indication: HYPERCHOLESTEROLAEMIA
     Dosage: 0-0-1
     Route: 065
  2. PREDNISOLONE. [Concomitant]
     Active Substance: PREDNISOLONE
     Indication: TINNITUS
     Dosage: 80/60/40/20/10/5 MG
     Route: 065
     Dates: start: 20150206, end: 20150212
  3. CIPRO [Suspect]
     Active Substance: CIPROFLOXACIN HYDROCHLORIDE
     Indication: DIARRHOEA
     Dosage: 1 DF, BID (1-0-1)
     Route: 048
     Dates: start: 20150206, end: 20150216
  4. LOSARTAN AL [Concomitant]
     Indication: HYPERTENSION
     Dosage: 1-0-1
     Route: 065

REACTIONS (5)
  - Insomnia [Recovering/Resolving]
  - Suicidal ideation [Not Recovered/Not Resolved]
  - Agitation [Not Recovered/Not Resolved]
  - Anxiety [Recovering/Resolving]
  - Blood pressure abnormal [Not Recovered/Not Resolved]

NARRATIVE: CASE EVENT DATE: 20150217
